FAERS Safety Report 25826349 (Version 1)
Quarter: 2025Q3

REPORT INFORMATION
  Report Type: Spontaneous
  Country: EU (occurrence: EU)
  Receive Date: 20250920
  Receipt Date: 20250920
  Transmission Date: 20251021
  Serious: Yes (Hospitalization)
  Sender: CELLTRION
  Company Number: None

PATIENT

DRUGS (3)
  1. YUFLYMA [Suspect]
     Active Substance: ADALIMUMAB-AATY
     Indication: Crohn^s disease
     Route: 058
     Dates: start: 20250526, end: 20250804
  2. YUFLYMA [Suspect]
     Active Substance: ADALIMUMAB-AATY
  3. CHOLECALCIFEROL [Concomitant]
     Active Substance: CHOLECALCIFEROL
     Indication: Crohn^s disease
     Dosage: 25000 INTERNATIONAL UNIT EVERY 14 DAYS
     Dates: start: 20250526, end: 20250826

REACTIONS (2)
  - Peripheral sensory neuropathy [Unknown]
  - Intentional product use issue [Unknown]

NARRATIVE: CASE EVENT DATE: 20250728
